FAERS Safety Report 9470346 (Version 1)
Quarter: 2013Q3

REPORT INFORMATION
  Report Type: Spontaneous
  Country: US (occurrence: US)
  Receive Date: 20130822
  Receipt Date: 20130822
  Transmission Date: 20140515
  Serious: No
  Sender: FDA-Public Use
  Company Number: US-SANOFI-AVENTIS-2012SA091532

PATIENT
  Age: 81 Year
  Sex: Female

DRUGS (2)
  1. MULTAQ [Suspect]
     Indication: PALPITATIONS
     Route: 048
     Dates: start: 201203
  2. MULTAQ [Suspect]
     Indication: PALPITATIONS
     Route: 048

REACTIONS (3)
  - Faeces discoloured [Not Recovered/Not Resolved]
  - Vision blurred [Not Recovered/Not Resolved]
  - Rash pruritic [Not Recovered/Not Resolved]
